FAERS Safety Report 12519718 (Version 1)
Quarter: 2016Q2

REPORT INFORMATION
  Report Type: Report from Study
  Country: AU (occurrence: AU)
  Receive Date: 20160630
  Receipt Date: 20160630
  Transmission Date: 20160815
  Serious: Yes (Other)
  Sender: FDA-Public Use
  Company Number: AU-EISAI MEDICAL RESEARCH-EC-2015-010307

PATIENT
  Age: 72 Year
  Sex: Male
  Weight: 91.6 kg

DRUGS (12)
  1. FEXOFENADINE [Concomitant]
     Active Substance: FEXOFENADINE\FEXOFENADINE HYDROCHLORIDE
  2. LORCASERIN [Suspect]
     Active Substance: LORCASERIN HYDROCHLORIDE
     Indication: WEIGHT CONTROL
     Route: 048
     Dates: start: 20150917, end: 20160310
  3. MAGNESIUM [Concomitant]
     Active Substance: MAGNESIUM
  4. COVERAM [Concomitant]
     Active Substance: AMLODIPINE\PERINDOPRIL
  5. VITAMIN C [Concomitant]
     Active Substance: ASCORBIC ACID
  6. SYMBICORT [Concomitant]
     Active Substance: BUDESONIDE\FORMOTEROL FUMARATE DIHYDRATE
  7. RABEPRAZOLE [Concomitant]
     Active Substance: RABEPRAZOLE
  8. GLYCERYL TRINITRATE [Concomitant]
     Active Substance: NITROGLYCERIN
  9. VENTOLIN [Concomitant]
     Active Substance: ALBUTEROL SULFATE
  10. PRISTIQ EXTENDED-RELEASE [Concomitant]
     Active Substance: DESVENLAFAXINE SUCCINATE
  11. ASPIRIN. [Concomitant]
     Active Substance: ASPIRIN
  12. CLOPIDOGREL [Concomitant]
     Active Substance: CLOPIDOGREL BISULFATE

REACTIONS (1)
  - Suicidal ideation [Recovered/Resolved]

NARRATIVE: CASE EVENT DATE: 201603
